FAERS Safety Report 8424238-1 (Version None)
Quarter: 2012Q2

REPORT INFORMATION
  Report Type: 
  Country: None (occurrence: None)
  Receive Date: 20120608
  Receipt Date: 20120118
  Transmission Date: 20120825
  Serious: No
  Sender: FDA-Public Use
  Company Number: US-ASTRAZENECA-2012SE01006

PATIENT
  Age: 77 Year
  Sex: Female
  Weight: 60.3 kg

DRUGS (6)
  1. PULMICORT FLEXHALER [Suspect]
     Indication: PAROSMIA
     Dosage: 180 MCG, 1 PUFF, TWICE A DAY
     Route: 055
  2. ACTOMEL [Concomitant]
     Indication: OSTEOPOROSIS
  3. HYDROCHLOROTHIAZDE TAB [Concomitant]
  4. MULTI-VITAMINS [Concomitant]
  5. SINTHROID [Concomitant]
     Indication: THYROID DISORDER
  6. CALCIUM [Concomitant]

REACTIONS (2)
  - LIP SWELLING [None]
  - OFF LABEL USE [None]
